FAERS Safety Report 25050013 (Version 1)
Quarter: 2025Q1

REPORT INFORMATION
  Report Type: Spontaneous
  Country: CA (occurrence: CA)
  Receive Date: 20250307
  Receipt Date: 20250307
  Transmission Date: 20250409
  Serious: Yes (Hospitalization, Other)
  Sender: CHEPLAPHARM
  Company Number: CA-ASTRAZENECA-202502CAN019969CA

PATIENT
  Age: 53 Year
  Sex: Female

DRUGS (15)
  1. QUETIAPINE [Suspect]
     Active Substance: QUETIAPINE
     Indication: Major depression
     Dosage: 400 MILLIGRAM, QD/SLOW RELEASE TABLET?DAILY DOSE: 400 MILLIGRAM
  2. QUETIAPINE [Suspect]
     Active Substance: QUETIAPINE
     Indication: Generalised anxiety disorder
     Dosage: 400 MILLIGRAM, QD/SLOW RELEASE TABLET?DAILY DOSE: 400 MILLIGRAM
  3. QUETIAPINE [Suspect]
     Active Substance: QUETIAPINE
     Indication: Schizoaffective disorder
     Dosage: 400 MILLIGRAM, QD/SLOW RELEASE TABLET?DAILY DOSE: 400 MILLIGRAM
  4. OLANZAPINE [Suspect]
     Active Substance: OLANZAPINE
     Indication: Generalised anxiety disorder
     Dosage: 20 MILLIGRAM, QD?DAILY DOSE: 20 MILLIGRAM
  5. OLANZAPINE [Suspect]
     Active Substance: OLANZAPINE
     Indication: Schizoaffective disorder
     Dosage: 20 MILLIGRAM, QD?DAILY DOSE: 20 MILLIGRAM
  6. OLANZAPINE [Suspect]
     Active Substance: OLANZAPINE
     Indication: Major depression
     Dosage: 20 MILLIGRAM, QD?DAILY DOSE: 20 MILLIGRAM
  7. CHLORPROMAZINE [Suspect]
     Active Substance: CHLORPROMAZINE
  8. CLOZAPINE [Suspect]
     Active Substance: CLOZAPINE
  9. HALOPERIDOL [Suspect]
     Active Substance: HALOPERIDOL
  10. LORAZEPAM [Suspect]
     Active Substance: LORAZEPAM
  11. PERPHENAZINE [Suspect]
     Active Substance: PERPHENAZINE
  12. SERTRALINE [Suspect]
     Active Substance: SERTRALINE HYDROCHLORIDE
     Dosage: 175 MILLIGRAM, QD?DAILY DOSE: 175 MILLIGRAM
  13. SERTRALINE [Suspect]
     Active Substance: SERTRALINE HYDROCHLORIDE
     Dosage: 200 MILLIGRAM, QD?DAILY DOSE: 200 MILLIGRAM
  14. THIORIDAZINE [Suspect]
     Active Substance: THIORIDAZINE
  15. PALIPERIDONE [Suspect]
     Active Substance: PALIPERIDONE

REACTIONS (13)
  - Dyskinesia [Recovering/Resolving]
  - Dystonia [Recovering/Resolving]
  - Head titubation [Recovering/Resolving]
  - Hyponatraemia [Recovering/Resolving]
  - Parkinsonism [Recovering/Resolving]
  - Tremor [Recovering/Resolving]
  - Polydipsia [Unknown]
  - Petit mal epilepsy [Unknown]
  - Apraxia [Recovering/Resolving]
  - Drug ineffective [Recovering/Resolving]
  - Movement disorder [Recovering/Resolving]
  - Myoclonus [Recovering/Resolving]
  - Tardive dyskinesia [Recovering/Resolving]
